FAERS Safety Report 18390845 (Version 1)
Quarter: 2020Q4

REPORT INFORMATION
  Report Type: Other
  Country: CN (occurrence: CN)
  Receive Date: 20201016
  Receipt Date: 20201016
  Transmission Date: 20210114
  Serious: Yes (Other)
  Sender: FDA-Public Use
  Company Number: CN-ROCHE-2691046

PATIENT

DRUGS (2)
  1. CAPECITABINE. [Suspect]
     Active Substance: CAPECITABINE
     Indication: NASOPHARYNGEAL CANCER
     Dosage: DAY1-14 OF A 21-DAY CYCLE
     Route: 048
  2. APATINIB [Suspect]
     Active Substance: APATINIB
     Indication: NASOPHARYNGEAL CANCER
     Route: 048

REACTIONS (7)
  - Oropharyngeal pain [Unknown]
  - Mucosal inflammation [Unknown]
  - Proteinuria [Unknown]
  - Fatigue [Unknown]
  - Haemorrhage [Unknown]
  - Hypertension [Unknown]
  - Alanine aminotransferase increased [Unknown]
